FAERS Safety Report 8320522-0 (Version None)
Quarter: 2012Q2

REPORT INFORMATION
  Report Type: 
  Country: None (occurrence: None)
  Receive Date: 20120430
  Receipt Date: 20120425
  Transmission Date: 20120825
  Serious: Yes (Life-Threatening)
  Sender: FDA-Public Use
  Company Number: IT-PFIZER INC-2012094463

PATIENT
  Sex: Male

DRUGS (1)
  1. CISPLATIN [Suspect]
     Dosage: UNK
     Route: 065

REACTIONS (1)
  - RENAL FAILURE ACUTE [None]
